FAERS Safety Report 6634449-3 (Version None)
Quarter: 2010Q1

REPORT INFORMATION
  Report Type: 
  Country: None (occurrence: None)
  Receive Date: 20100315
  Receipt Date: 20100302
  Transmission Date: 20100710
  Serious: Yes (Other)
  Sender: FDA-Public Use
  Company Number: US-PFIZER INC-2009285844

PATIENT
  Sex: Female
  Weight: 45.351 kg

DRUGS (5)
  1. DILANTIN-125 [Suspect]
     Indication: CONVULSION
     Dates: start: 20020101, end: 20040101
  2. LYRICA [Suspect]
     Indication: GRAND MAL CONVULSION
     Dosage: 150 MG, 3X/DAY
     Route: 048
     Dates: start: 20050101
  3. ESTROGENS ESTERIFIED [Concomitant]
     Indication: RADICAL HYSTERECTOMY
     Dosage: 2.5 MG, 1X/DAY
     Route: 048
  4. POTASSIUM CHLORIDE [Concomitant]
     Dosage: 99 MG, 1X/DAY
     Route: 048
  5. KEPPRA [Concomitant]
     Dosage: 2000 MG, 2X/DAY
     Route: 048
     Dates: start: 20040101

REACTIONS (12)
  - AFFECT LABILITY [None]
  - DEPRESSION [None]
  - DRUG HYPERSENSITIVITY [None]
  - EMOTIONAL DISTRESS [None]
  - GINGIVAL BLEEDING [None]
  - GINGIVAL PAIN [None]
  - INSOMNIA [None]
  - NASAL CONGESTION [None]
  - NASAL DRYNESS [None]
  - OEDEMA PERIPHERAL [None]
  - PARAESTHESIA [None]
  - WEIGHT INCREASED [None]
